FAERS Safety Report 24824421 (Version 1)
Quarter: 2025Q1

REPORT INFORMATION
  Report Type: Spontaneous
  Country: US (occurrence: US)
  Receive Date: 20250109
  Receipt Date: 20250109
  Transmission Date: 20250408
  Serious: No
  Sender: STALLERGENES
  Company Number: US-AIMMUNE THERAPEUTICS, INC.-2024AIMT00635

PATIENT
  Age: 4 Year
  Sex: Female

DRUGS (4)
  1. PALFORZIA [Suspect]
     Active Substance: PEANUT
     Indication: Food allergy
  2. PALFORZIA [Suspect]
     Active Substance: PEANUT
     Dosage: 6 MG, 1X/DAY
     Dates: start: 20240305
  3. PALFORZIA [Suspect]
     Active Substance: PEANUT
  4. EPIPEN [Concomitant]
     Active Substance: EPINEPHRINE
     Indication: Product used for unknown indication

REACTIONS (1)
  - Illness [Recovered/Resolved]

NARRATIVE: CASE EVENT DATE: 20240328
